FAERS Safety Report 23813939 (Version 1)
Quarter: 2024Q2

REPORT INFORMATION
  Report Type: Spontaneous
  Country: US (occurrence: US)
  Receive Date: 20240503
  Receipt Date: 20240503
  Transmission Date: 20240716
  Serious: No
  Sender: FDA-Public Use
  Company Number: US-GALDERMA-US2024001834

PATIENT

DRUGS (12)
  1. PROACTIV MD ADAPALENE ACNE TREATMENT [Suspect]
     Active Substance: ADAPALENE
     Indication: Acne
     Dosage: 1 DOSAGE FORM, SMALL AMOUNT, USED 3 TO 4 TIMES
     Route: 061
     Dates: start: 20230101, end: 20230116
  2. PROACTIV CLEAR SKIN SPF 30 [Concomitant]
     Active Substance: AVOBENZONE\OCTISALATE\OCTOCRYLENE
     Indication: Acne
     Dosage: 1 DOSAGE FORM, QD, APPLIED NICKEL SIZE
     Route: 061
     Dates: start: 20230101, end: 20230116
  3. Proactiv MD Ultra Hydrating Moisturizer [Concomitant]
     Indication: Acne
     Dosage: 1 DOSAGE FORM, QD, APPLIED NICKEL SIZE
     Route: 061
     Dates: start: 20230101, end: 20230116
  4. PROACTIV PLUS PORE TARGETING TREATMENT [Concomitant]
     Active Substance: BENZOYL PEROXIDE
     Indication: Acne
     Dosage: 1 DOSAGE FORM, QD, APPLIED NICKEL SIZE
     Route: 061
     Dates: start: 20230101, end: 20230116
  5. PROACTIV PLUS COMPLEXION PERFECTING HYDRATOR [Concomitant]
     Active Substance: SALICYLIC ACID
     Indication: Acne
     Dosage: 1 DOSAGE FORM, QD, APPLIED NICKEL SIZE
     Route: 061
     Dates: start: 20230101, end: 20230116
  6. PROACTIVPLUS SKIN SMOOTHING EXFOLIATOR [Concomitant]
     Active Substance: BENZOYL PEROXIDE
     Indication: Acne
     Dosage: 1 DOSAGE FORM, QD, APPLIED NICKEL SIZE
     Route: 061
     Dates: start: 20230101, end: 20230116
  7. PROACTIV BLACKHEAD DISSOLVING [Concomitant]
     Active Substance: SALICYLIC ACID
     Indication: Acne
     Dosage: 1 DOSAGE FORM, QD, APPLIED NICKEL SIZE
     Route: 061
     Dates: start: 20230101, end: 20230116
  8. COSMETICS [Concomitant]
     Active Substance: COSMETICS
     Indication: Acne
     Dosage: 1 DOSAGE FORM, QD, APPLIED NICKEL SIZE
     Route: 061
     Dates: start: 20230101, end: 20230116
  9. COSMETICS [Concomitant]
     Active Substance: COSMETICS
     Indication: Acne
     Dosage: 1 DOSAGE FORM, QD, APPLIED NICKEL SIZE
     Route: 061
     Dates: start: 20230101, end: 20230116
  10. Proactiv Amazonian Clay Mask [Concomitant]
     Indication: Acne
     Dosage: 1 DOSAGE FORM, QD, APPLIED NICKEL SIZE
     Route: 061
     Dates: start: 20230101, end: 20230116
  11. PROACTIV SKIN PURIFYING MASK [Concomitant]
     Active Substance: SULFUR
     Indication: Acne
     Dosage: 1 DOSAGE FORM, QD, APPLIED NICKEL SIZE
     Route: 061
     Dates: start: 20230101, end: 20230116
  12. PROACTIV ACNE BODY WASH [Concomitant]
     Active Substance: SALICYLIC ACID
     Indication: Acne
     Dosage: 1 DOSAGE FORM, QD, APPLIED NICKEL SIZE
     Route: 061
     Dates: start: 20230101, end: 20230116

REACTIONS (2)
  - Migraine [Recovered/Resolved]
  - Inappropriate schedule of product administration [Recovered/Resolved]

NARRATIVE: CASE EVENT DATE: 20230101
